FAERS Safety Report 16217080 (Version 1)
Quarter: 2019Q2

REPORT INFORMATION
  Report Type: Spontaneous
  Country: US (occurrence: US)
  Receive Date: 20190419
  Receipt Date: 20190419
  Transmission Date: 20190711
  Serious: Yes (Life-Threatening, Hospitalization, Other)
  Sender: FDA-Public Use
  Company Number: US-HIKMA PHARMACEUTICALS USA INC.-US-H14001-19-02470

PATIENT
  Age: 46 Year
  Sex: Male

DRUGS (3)
  1. GABAPENTIN. [Suspect]
     Active Substance: GABAPENTIN
     Indication: MUSCULOSKELETAL PAIN
     Route: 065
  2. GABAPENTIN. [Suspect]
     Active Substance: GABAPENTIN
     Indication: MUSCULOSKELETAL PAIN
     Route: 065
  3. IBUPROFEN. [Suspect]
     Active Substance: IBUPROFEN
     Indication: MUSCULOSKELETAL PAIN
     Route: 065

REACTIONS (11)
  - Mental disorder [Recovering/Resolving]
  - Malaise [Recovering/Resolving]
  - Off label use [Unknown]
  - Hypotension [Recovering/Resolving]
  - Delirium [Recovering/Resolving]
  - Liver injury [Recovering/Resolving]
  - Intentional product use issue [Recovering/Resolving]
  - Hallucination [Recovering/Resolving]
  - Myoclonus [Recovering/Resolving]
  - Drug clearance decreased [Recovering/Resolving]
  - Toxicity to various agents [Recovering/Resolving]
